FAERS Safety Report 8955238 (Version 2)
Quarter: 2012Q4

REPORT INFORMATION
  Report Type: 
  Country: US (occurrence: US)
  Receive Date: 20121207
  Receipt Date: 20121211
  Transmission Date: 20130627
  Serious: Yes (Other)
  Sender: FDA-Public Use
  Company Number: PHHY2012US111781

PATIENT
  Age: 2 Month
  Sex: Male

DRUGS (13)
  1. PREDNISONE [Suspect]
     Indication: THROMBOCYTOPENIC PURPURA
     Dosage: 2 mg/kg, per day
  2. PREDNISONE [Suspect]
     Dosage: 1.5 mg/kg, per day
  3. PREDNISONE [Suspect]
     Dosage: 0.4 mg/kg, per day
  4. PREDNISONE [Suspect]
     Dosage: 0.2 mg/kg, per day
  5. PREDNISONE [Suspect]
     Dosage: 2 mg/kg, per day
  6. PREDNISONE [Suspect]
     Dosage: 2 mg/kg, per day
  7. PREDNISONE [Suspect]
     Dosage: 1.5 mg/kg, per day
  8. PREDNISONE [Suspect]
     Dosage: 0.7 mg/kg, per day
  9. PREDNISONE [Suspect]
     Dosage: 0.5 mg/kg, per day
  10. PREDNISONE [Suspect]
     Dosage: 0.4 mg/kg, per day
  11. AZATHIOPRINE [Concomitant]
     Dosage: 10 mg, per day
  12. AZATHIOPRINE [Concomitant]
     Dosage: 15 mg, per day
  13. MYCOPHENOLATE [Concomitant]
     Dosage: 40 mg/kg, per day

REACTIONS (7)
  - Autoimmune hepatitis [Recovering/Resolving]
  - Portal hypertension [Recovering/Resolving]
  - Hypertension [Recovering/Resolving]
  - Jaundice [Recovering/Resolving]
  - Pyrexia [Recovering/Resolving]
  - Hepatitis [Recovering/Resolving]
  - Failure to thrive [Recovering/Resolving]
